FAERS Safety Report 5016089-5 (Version None)
Quarter: 2006Q2

REPORT INFORMATION
  Report Type: 
  Country: None (occurrence: None)
  Receive Date: 20060414
  Receipt Date: 20060208
  Transmission Date: 20061013
  Serious: No
  Sender: FDA-Public Use
  Company Number: 2006SP000692

PATIENT
  Age: 40 Year
  Sex: Female

DRUGS (1)
  1. LUNESTA [Suspect]
     Dosage: 1 MG;ORAL
     Route: 048
     Dates: start: 20060203

REACTIONS (3)
  - DYSGEUSIA [None]
  - INSOMNIA [None]
  - NAUSEA [None]
